FAERS Safety Report 12858510 (Version 1)
Quarter: 2016Q4

REPORT INFORMATION
  Report Type: Spontaneous
  Country: US (occurrence: US)
  Receive Date: 20161018
  Receipt Date: 20161018
  Transmission Date: 20170207
  Serious: No
  Sender: FDA-Public Use
  Company Number: US-PFIZER INC-2016483043

PATIENT
  Age: 61 Year
  Sex: Female
  Weight: 71 kg

DRUGS (7)
  1. MAXZIDE [Concomitant]
     Active Substance: HYDROCHLOROTHIAZIDE\TRIAMTERENE
     Dosage: UNK UNK, DAILY [HYDROCHLOROTHIAZIDE: 50 MG/ TRIAMTERENE: 75 MG]
     Route: 048
     Dates: start: 20160906
  2. DICYCLOMINE HCL [Concomitant]
     Active Substance: DICYCLOMINE HYDROCHLORIDE
     Dosage: 10 MG, UNK (BEFORE MEALS AND BEDTIME)
     Dates: start: 20151231
  3. PREMARIN [Suspect]
     Active Substance: ESTROGENS, CONJUGATED
     Indication: MENOPAUSE
     Dosage: UNK, 2X/WEEK (1 (ONE) CREAM INTO VAGINA 2 GRAM PV TWICE WEEKLEY)
     Route: 067
     Dates: start: 20160916
  4. VITAMIN B12 [Concomitant]
     Active Substance: CYANOCOBALAMIN
     Dosage: 100 UG, DAILY
     Route: 048
  5. OMEPRAZOLE. [Concomitant]
     Active Substance: OMEPRAZOLE
     Dosage: 20 MG, DAILY
     Route: 048
     Dates: start: 20150429
  6. VIIBRYD [Concomitant]
     Active Substance: VILAZODONE HYDROCHLORIDE
     Dosage: 20 MG, DAILY
     Route: 048
     Dates: start: 20160108
  7. VITAMIN D3 [Concomitant]
     Active Substance: CHOLECALCIFEROL
     Dosage: 400 IU, 2X/DAY
     Route: 048

REACTIONS (3)
  - Product use issue [Unknown]
  - Temporomandibular joint syndrome [Unknown]
  - Headache [Unknown]
